FAERS Safety Report 6726901-7 (Version None)
Quarter: 2010Q2

REPORT INFORMATION
  Report Type: 
  Country: None (occurrence: None)
  Receive Date: 20100517
  Receipt Date: 20100507
  Transmission Date: 20101027
  Serious: Yes (Other)
  Sender: FDA-Public Use
  Company Number: GB-SP-2010-02556

PATIENT
  Sex: Male

DRUGS (1)
  1. IMMUCYST [Suspect]
     Indication: DRUG USE FOR UNKNOWN INDICATION
     Dosage: 2 X 10^8 UNITS
     Route: 065
     Dates: start: 20080801, end: 20080801

REACTIONS (2)
  - CARCINOMA IN SITU [None]
  - DRUG INTOLERANCE [None]
